FAERS Safety Report 5805229-3 (Version None)
Quarter: 2008Q3

REPORT INFORMATION
  Report Type: 
  Country: None (occurrence: None)
  Receive Date: 20080707
  Receipt Date: 20080626
  Transmission Date: 20090109
  Serious: Yes (Life-Threatening, Hospitalization, Other)
  Sender: FDA-Public Use
  Company Number: 030052

PATIENT
  Age: 40 Year
  Sex: Female
  Weight: 62 kg

DRUGS (6)
  1. AZITHROMYCIN [Suspect]
     Indication: PYREXIA
     Dosage: 500 MG, SINGLE, ORAL, 250 MG, QD, ORAL
     Route: 048
     Dates: start: 19980619, end: 19980620
  2. AZITHROMYCIN [Suspect]
     Indication: PYREXIA
     Dosage: 500 MG, SINGLE, ORAL, 250 MG, QD, ORAL
     Route: 048
     Dates: start: 19980620, end: 19980630
  3. DISOPYRAMIDE [Suspect]
     Indication: SYNCOPE
     Dosage: 150 MG, QID, ORAL, 150 MG, TID, ORAL
     Route: 048
  4. DISOPYRAMIDE [Suspect]
     Indication: SYNCOPE
     Dosage: 150 MG, QID, ORAL, 150 MG, TID, ORAL
     Route: 048
  5. METOPROLOL SUCCINATE [Concomitant]
  6. LEVOTHYROXINE SODIUM [Concomitant]

REACTIONS (25)
  - ABDOMINAL PAIN LOWER [None]
  - AUTOIMMUNE THYROIDITIS [None]
  - BLOOD CALCIUM DECREASED [None]
  - BUNDLE BRANCH BLOCK LEFT [None]
  - CARDIAC ARREST [None]
  - CARDIOMYOPATHY [None]
  - CAT SCRATCH DISEASE [None]
  - DIZZINESS [None]
  - DRUG INTERACTION [None]
  - DRUG LEVEL INCREASED [None]
  - EJECTION FRACTION DECREASED [None]
  - ELECTROCARDIOGRAM QT PROLONGED [None]
  - ELECTROCARDIOGRAM T WAVE INVERSION [None]
  - HYPOTENSION [None]
  - LEFT VENTRICULAR DYSFUNCTION [None]
  - LOSS OF CONSCIOUSNESS [None]
  - MALAISE [None]
  - NEGATIVE CARDIAC INOTROPIC EFFECT [None]
  - NODAL RHYTHM [None]
  - PRIMARY HYPOTHYROIDISM [None]
  - PYREXIA [None]
  - SINUS TACHYCARDIA [None]
  - URINARY RETENTION [None]
  - VENTRICULAR EXTRASYSTOLES [None]
  - VENTRICULAR TACHYCARDIA [None]
